FAERS Safety Report 23803391 (Version 1)
Quarter: 2024Q2

REPORT INFORMATION
  Report Type: Spontaneous
  Country: CN (occurrence: CN)
  Receive Date: 20240501
  Receipt Date: 20240501
  Transmission Date: 20240715
  Serious: Yes (Disabling, Other)
  Sender: FDA-Public Use
  Company Number: CN-PFIZER INC-PV202400055925

PATIENT
  Age: 52 Year
  Sex: Female
  Weight: 57 kg

DRUGS (3)
  1. INLYTA [Suspect]
     Active Substance: AXITINIB
     Indication: Neoplasm
     Dosage: 5 MG, 2X/DAY
     Route: 048
     Dates: start: 20240425, end: 20240425
  2. TORIPALIMAB [Suspect]
     Active Substance: TORIPALIMAB
     Indication: Neoplasm
     Dosage: 240 MG, ONCE IN 21 DAYS
     Route: 041
     Dates: start: 20240425, end: 20240425
  3. SODIUM CHLORIDE [Concomitant]
     Active Substance: SODIUM CHLORIDE
     Indication: Renal cell carcinoma
     Dosage: 100 ML, ONCE IN 7 DAYS
     Route: 041
     Dates: start: 20240425, end: 20240425

REACTIONS (2)
  - Hypothyroidism [Recovered/Resolved with Sequelae]
  - Hyperlipidaemia [Recovered/Resolved with Sequelae]

NARRATIVE: CASE EVENT DATE: 20240425
